FAERS Safety Report 10265149 (Version 1)
Quarter: 2014Q2

REPORT INFORMATION
  Report Type: Spontaneous
  Country: GB (occurrence: GB)
  Receive Date: 20140627
  Receipt Date: 20140627
  Transmission Date: 20141212
  Serious: No
  Sender: FDA-Public Use
  Company Number: GB-SA-2014SA065544

PATIENT
  Age: 26 Year
  Sex: Female

DRUGS (1)
  1. ARAVA [Suspect]
     Indication: ARTHROPATHY
     Route: 048

REACTIONS (1)
  - Exposure during pregnancy [Unknown]
